FAERS Safety Report 8499611-6 (Version None)
Quarter: 2012Q3

REPORT INFORMATION
  Report Type: 
  Country: None (occurrence: None)
  Receive Date: 20120710
  Receipt Date: 20120703
  Transmission Date: 20120928
  Serious: Yes (Other)
  Sender: FDA-Public Use
  Company Number: KR-JNJFOC-20120702703

PATIENT
  Sex: Male

DRUGS (1)
  1. ABCIXIMAB [Suspect]
     Indication: EMBOLISM
     Route: 013

REACTIONS (2)
  - APALLIC SYNDROME [None]
  - INCORRECT ROUTE OF DRUG ADMINISTRATION [None]
